FAERS Safety Report 6671926-3 (Version None)
Quarter: 2010Q2

REPORT INFORMATION
  Report Type: 
  Country: None (occurrence: None)
  Receive Date: 20100407
  Receipt Date: 20100329
  Transmission Date: 20101027
  Serious: Yes (Hospitalization)
  Sender: FDA-Public Use
  Company Number: US-ABBOTT-10P-163-0635121-00

PATIENT
  Sex: Male

DRUGS (3)
  1. K-TAB [Suspect]
     Indication: ANAEMIA
     Dates: start: 19900101
  2. UNKNOWN WATER PILL [Concomitant]
     Indication: DRUG USE FOR UNKNOWN INDICATION
  3. ASPIRIN [Concomitant]
     Indication: CARDIAC DISORDER

REACTIONS (2)
  - ELECTROLYTE DEPLETION [None]
  - SKIN LACERATION [None]
